FAERS Safety Report 19857029 (Version 6)
Quarter: 2023Q4

REPORT INFORMATION
  Report Type: Report from Study
  Country: US (occurrence: US)
  Receive Date: 20210920
  Receipt Date: 20231109
  Transmission Date: 20240109
  Serious: Yes (Death, Hospitalization)
  Sender: FDA-Public Use
  Company Number: US-SECURA BIO, INC.-2021-SECUR-US003371

PATIENT

DRUGS (21)
  1. DUVELISIB [Suspect]
     Active Substance: DUVELISIB
     Indication: T-cell lymphoma refractory
     Dosage: 75 MG, BID
     Route: 048
     Dates: start: 20210810, end: 20210907
  2. CEFEPIME [Concomitant]
     Active Substance: CEFEPIME HYDROCHLORIDE
     Indication: Pyrexia
     Dosage: 2000 MG, Q8HR
     Route: 042
     Dates: start: 20210803, end: 20210812
  3. APAP [Concomitant]
     Active Substance: ACETAMINOPHEN
     Indication: Headache
     Route: 065
  4. NORCO [Concomitant]
     Active Substance: ACETAMINOPHEN\HYDROCODONE BITARTRATE
     Indication: Headache
     Dosage: 5 TO 325
     Route: 048
     Dates: start: 20210803
  5. NORCO [Concomitant]
     Active Substance: ACETAMINOPHEN\HYDROCODONE BITARTRATE
     Indication: Pain
  6. MAGNESIUM SULFATE [Concomitant]
     Active Substance: MAGNESIUM SULFATE\MAGNESIUM SULFATE HEPTAHYDRATE
     Indication: Hypomagnesaemia
     Dosage: 4 G, PRN
     Route: 042
     Dates: start: 20210804
  7. MAGNESIUM SULFATE [Concomitant]
     Active Substance: MAGNESIUM SULFATE\MAGNESIUM SULFATE HEPTAHYDRATE
     Dosage: 2 G, ONCE
     Route: 042
  8. TYLENOL [Concomitant]
     Active Substance: ACETAMINOPHEN
     Indication: Pain
     Dosage: 650 MG, PRN
     Route: 048
     Dates: start: 20210803, end: 20210813
  9. TYLENOL [Concomitant]
     Active Substance: ACETAMINOPHEN
     Indication: Pyrexia
  10. ACYCLOVIR [Concomitant]
     Active Substance: ACYCLOVIR
     Indication: Antiviral prophylaxis
     Dosage: 400 MG, BID
     Route: 048
     Dates: start: 20210803
  11. LOVENOX [Concomitant]
     Active Substance: ENOXAPARIN SODIUM
     Indication: Thrombosis prophylaxis
     Dosage: 40 MG, DAILY
     Route: 058
     Dates: start: 20210805, end: 20210815
  12. AQUAPHOR [Concomitant]
     Active Substance: PETROLATUM
     Indication: Peripheral T-cell lymphoma unspecified
     Dosage: 1 DF, QID
     Route: 061
     Dates: start: 20210806
  13. MIRALAX [Concomitant]
     Active Substance: POLYETHYLENE GLYCOL 3350
     Indication: Constipation
     Dosage: 17 G, PRN
     Route: 048
     Dates: start: 20210803
  14. COLACE [Concomitant]
     Active Substance: DOCUSATE SODIUM
     Indication: Constipation
     Dosage: 50 MG, PRN
     Route: 048
     Dates: start: 20210823
  15. SENNA [Concomitant]
     Active Substance: SENNA LEAF\SENNOSIDES\SENNOSIDES A AND B
     Indication: Constipation
     Dosage: 17.2 MG, QID
     Route: 048
     Dates: start: 20210803
  16. BACTRIM [Concomitant]
     Active Substance: SULFAMETHOXAZOLE\TRIMETHOPRIM
     Indication: Prophylaxis
     Dosage: 800-160
     Route: 048
     Dates: start: 20210803, end: 20210815
  17. ATOVAQUONE [Concomitant]
     Active Substance: ATOVAQUONE
     Indication: Prophylaxis
     Dosage: 1500 MG, DAILY
     Route: 048
     Dates: start: 20210815
  18. MAGNESIUM OXIDE [Concomitant]
     Active Substance: MAGNESIUM OXIDE
     Indication: Hypomagnesaemia
     Dosage: 400 MG, ONCE
     Route: 048
     Dates: start: 20210814
  19. PANTOPRAZOLE [Concomitant]
     Active Substance: PANTOPRAZOLE
     Indication: Gastrooesophageal reflux prophylaxis
     Dosage: 40 MG, DAILY
     Route: 048
     Dates: start: 20210809, end: 20210815
  20. SODIUM PHOSPHATE [Concomitant]
     Active Substance: SODIUM PHOSPHATE
     Indication: Hyponatraemia
     Dosage: 20 MEQ ONCE
     Route: 042
     Dates: start: 20210810
  21. CEFDINIR [Concomitant]
     Active Substance: CEFDINIR
     Indication: Prophylaxis
     Dosage: 300 MG, BID
     Route: 048
     Dates: start: 20210815

REACTIONS (4)
  - Multiple organ dysfunction syndrome [Fatal]
  - Disease progression [Fatal]
  - Cardiac arrest [Fatal]
  - Febrile neutropenia [Not Recovered/Not Resolved]

NARRATIVE: CASE EVENT DATE: 20210908
